FAERS Safety Report 8158181-2 (Version None)
Quarter: 2012Q1

REPORT INFORMATION
  Report Type: 
  Country: None (occurrence: None)
  Receive Date: 20120222
  Receipt Date: 20120214
  Transmission Date: 20120608
  Serious: Yes (Other)
  Sender: FDA-Public Use
  Company Number: FR-BRISTOL-MYERS SQUIBB COMPANY-15728165

PATIENT
  Age: 32 Year
  Sex: Female

DRUGS (2)
  1. ABILIFY [Suspect]
     Dates: end: 20110101
  2. ORAP [Concomitant]

REACTIONS (2)
  - ABORTION INDUCED [None]
  - PREGNANCY [None]
